FAERS Safety Report 11203713 (Version 1)
Quarter: 2015Q2

REPORT INFORMATION
  Report Type: Spontaneous
  Country: US (occurrence: US)
  Receive Date: 20150619
  Receipt Date: 20150619
  Transmission Date: 20150821
  Serious: No
  Sender: FDA-Public Use
  Company Number: US-CELGENEUS-USA-2015054358

PATIENT
  Age: 58 Year
  Sex: Male
  Weight: 95.34 kg

DRUGS (1)
  1. OTEZLA [Suspect]
     Active Substance: APREMILAST
     Indication: PSORIASIS
     Dosage: STARTER PACK, DAY 3 MORNING
     Route: 048
     Dates: start: 20150516

REACTIONS (3)
  - Blood pressure increased [Not Recovered/Not Resolved]
  - Tanning [Not Recovered/Not Resolved]
  - Headache [Not Recovered/Not Resolved]

NARRATIVE: CASE EVENT DATE: 201505
